FAERS Safety Report 8171651-6 (Version None)
Quarter: 2012Q1

REPORT INFORMATION
  Report Type: 
  Country: None (occurrence: None)
  Receive Date: 20120104
  Receipt Date: 20111205
  Transmission Date: 20120608
  Serious: No
  Sender: FDA-Public Use
  Company Number: 2011HGS-002611

PATIENT
  Age: 59 Year
  Sex: Female
  Weight: 45.8133 kg

DRUGS (5)
  1. BENLYSTA [Suspect]
     Indication: SYSTEMIC LUPUS ERYTHEMATOSUS
     Dosage: 10 MG/KG, 1 IN 28 D, INTRAVENOUS DRIP
     Route: 041
     Dates: start: 20110712
  2. COLCRYS (COLCHICINE) [Concomitant]
  3. PLAQUENIL [Concomitant]
  4. AGTELVIA (RISEDRONATE SODIUM) [Concomitant]
  5. PREDNISONE TAB [Concomitant]

REACTIONS (15)
  - INFECTION [None]
  - GINGIVITIS [None]
  - SYSTEMIC LUPUS ERYTHEMATOSUS [None]
  - ARTHRALGIA [None]
  - PYREXIA [None]
  - CYSTITIS [None]
  - HYPOTENSION [None]
  - CONDITION AGGRAVATED [None]
  - SWELLING FACE [None]
  - DRY EYE [None]
  - HEADACHE [None]
  - UPPER RESPIRATORY TRACT INFECTION [None]
  - PAIN [None]
  - FATIGUE [None]
  - URINARY TRACT INFECTION [None]
